FAERS Safety Report 7261631-7 (Version None)
Quarter: 2011Q1

REPORT INFORMATION
  Report Type: 
  Country: None (occurrence: None)
  Receive Date: 20110130
  Receipt Date: 20101022
  Transmission Date: 20110831
  Serious: No
  Sender: FDA-Public Use
  Company Number: US-ABBOTT-10P-163-0680546-00

PATIENT
  Age: 43 Year
  Sex: Female

DRUGS (15)
  1. VISTARIL [Concomitant]
     Indication: ANXIETY
  2. NEURONTIN [Concomitant]
     Indication: PAIN
  3. PERCOCET [Concomitant]
     Indication: PAIN
     Dosage: 10/325 MG
  4. KLONOPIN [Concomitant]
     Indication: ANXIETY
  5. HUMIRA [Suspect]
     Indication: CROHN'S DISEASE
     Dosage: LOADING DOSE
     Dates: start: 20101021
  6. ZANAFLEX [Concomitant]
     Indication: BACK PAIN
  7. RESTORIL [Concomitant]
     Indication: INSOMNIA
  8. ENTOCORT EC [Concomitant]
     Indication: CROHN'S DISEASE
  9. PROZAC [Concomitant]
     Indication: DEPRESSION
  10. LOVESIN [Concomitant]
     Indication: ABDOMINAL PAIN
     Dosage: AS REQUIRED
  11. TRAMADOL HCL [Concomitant]
     Indication: PAIN
  12. COMPAZINE [Concomitant]
     Indication: VOMITING
  13. COMPAZINE [Concomitant]
     Indication: NAUSEA
  14. PRILOSEC [Concomitant]
     Indication: PRODUCT USED FOR UNKNOWN INDICATION
  15. ARMOR THYROID [Concomitant]
     Indication: PRODUCT USED FOR UNKNOWN INDICATION

REACTIONS (5)
  - INJECTION SITE PAIN [None]
  - RHINORRHOEA [None]
  - PAIN [None]
  - ARTHRALGIA [None]
  - PRODUCTIVE COUGH [None]
